FAERS Safety Report 10053668 (Version 4)
Quarter: 2014Q2

REPORT INFORMATION
  Report Type: Spontaneous
  Country: US (occurrence: US)
  Receive Date: 20140402
  Receipt Date: 20140606
  Transmission Date: 20141212
  Serious: No
  Sender: FDA-Public Use
  Company Number: US-009507513-1403USA013711

PATIENT
  Age: 28 Year
  Sex: Female
  Weight: 66.21 kg

DRUGS (8)
  1. IMPLANON [Suspect]
     Indication: CONTRACEPTION
     Dosage: 1 DF, UNK
     Route: 059
     Dates: start: 20130129
  2. LAMICTAL [Concomitant]
  3. OMEGA-3 MARINE TRIGLYCERIDES [Concomitant]
  4. CYMBALTA [Concomitant]
  5. SEROQUEL [Concomitant]
  6. ZYRTEC [Concomitant]
  7. ALBUTEROL SULFATE [Concomitant]
  8. VITAMINS (UNSPECIFIED) [Concomitant]

REACTIONS (3)
  - Unintended pregnancy [Unknown]
  - Medical device complication [Unknown]
  - Anaphylactic reaction [Unknown]
